FAERS Safety Report 9403421 (Version 1)
Quarter: 2013Q3

REPORT INFORMATION
  Report Type: Report from Study
  Country: US (occurrence: US)
  Receive Date: 20130716
  Receipt Date: 20130716
  Transmission Date: 20140515
  Serious: Yes (Other)
  Sender: FDA-Public Use
  Company Number: US-US-EMD SERONO, INC.-7223546

PATIENT
  Age: 40 Year
  Sex: Female

DRUGS (1)
  1. REBIF [Suspect]
     Indication: MULTIPLE SCLEROSIS
     Route: 058
     Dates: start: 20060827

REACTIONS (4)
  - Thalassaemia [Unknown]
  - Uterine leiomyoma [Recovering/Resolving]
  - Multiple sclerosis relapse [Recovering/Resolving]
  - Injection site erythema [Not Recovered/Not Resolved]
